FAERS Safety Report 7035593-1 (Version None)
Quarter: 2010Q4

REPORT INFORMATION
  Report Type: 
  Country: None (occurrence: None)
  Receive Date: 20101008
  Receipt Date: 20100927
  Transmission Date: 20110411
  Serious: Yes (Other)
  Sender: FDA-Public Use
  Company Number: US-PFIZER INC-2010114242

PATIENT
  Sex: Female

DRUGS (3)
  1. DETROL LA [Suspect]
     Dosage: UNK
  2. VESICARE [Suspect]
     Dosage: UNK
  3. DARIFENACIN HYDROBROMIDE [Suspect]

REACTIONS (3)
  - DRUG INEFFECTIVE [None]
  - HYSTERECTOMY [None]
  - URINARY INCONTINENCE [None]
